FAERS Safety Report 22028001 (Version 2)
Quarter: 2023Q2

REPORT INFORMATION
  Report Type: Spontaneous
  Country: US (occurrence: US)
  Receive Date: 20230223
  Receipt Date: 20230404
  Transmission Date: 20230722
  Serious: Yes (Hospitalization, Other)
  Sender: FDA-Public Use
  Company Number: US-ABBVIE-4315805

PATIENT
  Sex: Female
  Weight: 68 kg

DRUGS (22)
  1. SYNTHROID [Suspect]
     Active Substance: LEVOTHYROXINE SODIUM
     Indication: Hypothyroidism
     Route: 048
     Dates: start: 2012
  2. PFIZER-BIONTECH COVID-19 VACCINE [Suspect]
     Active Substance: TOZINAMERAN
     Indication: COVID-19 immunisation
     Dosage: 1ST DOSE
     Route: 030
     Dates: start: 20210305, end: 20210305
  3. PFIZER-BIONTECH COVID-19 VACCINE [Suspect]
     Active Substance: TOZINAMERAN
     Indication: COVID-19 immunisation
     Dosage: 5TH DOSE
     Route: 030
     Dates: start: 20220930, end: 20220930
  4. PFIZER-BIONTECH COVID-19 VACCINE [Suspect]
     Active Substance: TOZINAMERAN
     Indication: COVID-19 immunisation
     Dosage: 4TH DOSE
     Route: 030
     Dates: start: 20220406, end: 20220406
  5. PFIZER-BIONTECH COVID-19 VACCINE [Suspect]
     Active Substance: TOZINAMERAN
     Indication: COVID-19 immunisation
     Dosage: 2ND DOSE
     Route: 030
     Dates: start: 20210326, end: 20210326
  6. PFIZER-BIONTECH COVID-19 VACCINE [Suspect]
     Active Substance: TOZINAMERAN
     Indication: COVID-19 immunisation
     Dosage: 3RD DOSE
     Route: 030
     Dates: start: 20210903, end: 20210903
  7. HUMALOG [Concomitant]
     Active Substance: INSULIN LISPRO
     Indication: Diabetes mellitus
     Dosage: DOSE VARIES THROUGH DAY
  8. ATORVASTATIN [Concomitant]
     Active Substance: ATORVASTATIN
     Indication: Blood cholesterol abnormal
  9. PREGABALIN [Concomitant]
     Active Substance: PREGABALIN
     Indication: Pain management
  10. ENALAPRIL [Concomitant]
     Active Substance: ENALAPRIL
     Indication: Blood pressure management
     Dosage: DIFFERENT DOSE FOR 20 YEARS
  11. VITAMIN D3 [Concomitant]
     Active Substance: CHOLECALCIFEROL
     Indication: Product used for unknown indication
     Dosage: PUT HER ON IT A FEW YEARS AGO
  12. COLCHICINE [Concomitant]
     Active Substance: COLCHICINE
     Indication: Inflammation
     Dosage: FREQUENCY TEXT: IN MORNING
     Dates: start: 202208
  13. VASCEPA [Concomitant]
     Active Substance: ICOSAPENT ETHYL
     Indication: Blood cholesterol abnormal
     Dosage: BEEN TAKING, PROBABLY 2 YEARS
  14. XANAX [Concomitant]
     Active Substance: ALPRAZOLAM
     Indication: Cerebrovascular accident
     Dosage: BEEN ON IT ABOUT 23 YEARS
  15. TYLENOL [Concomitant]
     Active Substance: ACETAMINOPHEN
     Indication: Product used for unknown indication
     Route: 048
  16. CARVEDILOL [Concomitant]
     Active Substance: CARVEDILOL
     Indication: Cardiac disorder
     Dates: start: 2022
  17. FLUOXETINE [Concomitant]
     Active Substance: FLUOXETINE HYDROCHLORIDE
     Indication: Affective disorder
  18. BRILINTA [Concomitant]
     Active Substance: TICAGRELOR
     Indication: Product used for unknown indication
     Dates: start: 202208
  19. ASPIRIN [Concomitant]
     Active Substance: ASPIRIN
     Indication: Cardiac disorder
     Dosage: BEEN FOREVER, 20 YEARS
  20. MINERALS\VITAMINS [Concomitant]
     Active Substance: MINERALS\VITAMINS
     Indication: Vitamin supplementation
  21. PANTOPRAZOLE [Concomitant]
     Active Substance: PANTOPRAZOLE
     Indication: Gout
     Dosage: FREQUENCY TEXT: IN MORNING
     Dates: start: 202208
  22. ZOFRAN [Concomitant]
     Active Substance: ONDANSETRON HYDROCHLORIDE
     Indication: Nausea

REACTIONS (33)
  - Coronary artery disease [Unknown]
  - Pericardial effusion [Recovered/Resolved]
  - Vitamin B12 deficiency [Recovering/Resolving]
  - Thoracic operation [Unknown]
  - Spinal osteoarthritis [Not Recovered/Not Resolved]
  - Hand fracture [Not Recovered/Not Resolved]
  - Mitral valve incompetence [Not Recovered/Not Resolved]
  - Seronegative arthritis [Unknown]
  - Arteriosclerosis coronary artery [Recovered/Resolved]
  - Osteopetrosis [Unknown]
  - Osteoarthritis [Unknown]
  - Joint injury [Not Recovered/Not Resolved]
  - Dermatitis allergic [Unknown]
  - Arteriosclerosis coronary artery [Recovered/Resolved]
  - Hypothyroidism [Unknown]
  - C-reactive protein increased [Recovering/Resolving]
  - Periarthritis [Unknown]
  - Blood glucose increased [Recovered/Resolved]
  - Constipation [Not Recovered/Not Resolved]
  - Pleural effusion [Unknown]
  - Inflammation [Not Recovered/Not Resolved]
  - Hypertension [Not Recovered/Not Resolved]
  - Wrong product administered [Unknown]
  - Cerebrovascular accident [Not Recovered/Not Resolved]
  - Anaemia [Recovering/Resolving]
  - Ligament sprain [Not Recovered/Not Resolved]
  - Arteriosclerosis coronary artery [Recovering/Resolving]
  - Osteoporosis [Not Recovered/Not Resolved]
  - Hypoaesthesia [Not Recovered/Not Resolved]
  - Osteopenia [Unknown]
  - Limb discomfort [Recovering/Resolving]
  - Rosacea [Recovering/Resolving]
  - Psoriasis [Not Recovered/Not Resolved]

NARRATIVE: CASE EVENT DATE: 20150101
